FAERS Safety Report 14638790 (Version 1)
Quarter: 2018Q1

REPORT INFORMATION
  Report Type: Spontaneous
  Country: FR (occurrence: FR)
  Receive Date: 20180315
  Receipt Date: 20180315
  Transmission Date: 20180509
  Serious: Yes (Disabling, Other)
  Sender: FDA-Public Use
  Company Number: FR-MERCK KGAA-2043751

PATIENT
  Age: 54 Year
  Sex: Female

DRUGS (1)
  1. NOVOTHYROX [Suspect]
     Active Substance: LEVOTHYROXINE SODIUM
     Indication: PRODUCT USED FOR UNKNOWN INDICATION

REACTIONS (26)
  - Abdominal pain upper [None]
  - Condition aggravated [None]
  - Pain [Not Recovered/Not Resolved]
  - Nasopharyngitis [None]
  - Blindness [None]
  - C-reactive protein increased [None]
  - Vomiting [None]
  - Dizziness [None]
  - Weight increased [None]
  - Platelet count decreased [None]
  - Dysgraphia [None]
  - Hyperhidrosis [None]
  - Fatigue [None]
  - Amnesia [None]
  - Blood thyroid stimulating hormone increased [None]
  - Visual impairment [None]
  - Neutrophil count decreased [None]
  - Tendon pain [None]
  - Impaired driving ability [None]
  - Somnolence [None]
  - Pain in extremity [None]
  - Gait inability [None]
  - Decreased appetite [None]
  - Loss of personal independence in daily activities [None]
  - Cerebral disorder [None]
  - Pyrexia [None]

NARRATIVE: CASE EVENT DATE: 201704
